FAERS Safety Report 4909156-5 (Version None)
Quarter: 2006Q1

REPORT INFORMATION
  Report Type: 
  Country: None (occurrence: None)
  Receive Date: 20060209
  Receipt Date: 20060209
  Transmission Date: 20060701
  Serious: Yes (Hospitalization)
  Sender: FDA-Public Use
  Company Number: None

PATIENT
  Age: 46 Year
  Sex: Male
  Weight: 107 kg

DRUGS (6)
  1. VANCOMYCIN [Suspect]
     Indication: STAPHYLOCOCCAL INFECTION
     Dosage: 1500 MG Q 24 H IV
     Route: 042
     Dates: start: 20051215, end: 20060107
  2. GENTAMICIN [Concomitant]
  3. CEFAZOLIN [Concomitant]
  4. RIFAMPIN [Concomitant]
  5. OXACILLIN [Concomitant]
  6. DAPTOMYCIN [Concomitant]

REACTIONS (18)
  - CANDIDIASIS [None]
  - CATHETER RELATED INFECTION [None]
  - CHILLS [None]
  - DRUG RASH WITH EOSINOPHILIA AND SYSTEMIC SYMPTOMS [None]
  - EOSINOPHIL PERCENTAGE INCREASED [None]
  - FUNGAL INFECTION [None]
  - GENERALISED OEDEMA [None]
  - HEADACHE [None]
  - HEPATOSPLENOMEGALY [None]
  - HYPERHIDROSIS [None]
  - LEUKAEMIA [None]
  - PAIN [None]
  - PYREXIA [None]
  - RASH PRURITIC [None]
  - RED MAN SYNDROME [None]
  - RENAL FAILURE ACUTE [None]
  - WEIGHT INCREASED [None]
  - WHITE BLOOD CELL COUNT INCREASED [None]
